FAERS Safety Report 5606152-X (Version None)
Quarter: 2008Q1

REPORT INFORMATION
  Report Type: 
  Country: None (occurrence: None)
  Receive Date: 20080129
  Receipt Date: 20070716
  Transmission Date: 20080703
  Serious: No
  Sender: FDA-Public Use
  Company Number: A0664297A

PATIENT
  Age: 56 Year
  Sex: Female

DRUGS (1)
  1. MEPRON [Suspect]
     Dosage: 1TSP TWICE PER DAY
     Route: 048
     Dates: start: 20070710

REACTIONS (1)
  - GASTROOESOPHAGEAL REFLUX DISEASE [None]
